FAERS Safety Report 19792532 (Version 1)
Quarter: 2021Q3

REPORT INFORMATION
  Report Type: Spontaneous
  Country: US (occurrence: US)
  Receive Date: 20210906
  Receipt Date: 20210906
  Transmission Date: 20211014
  Serious: No
  Sender: FDA-Public Use
  Company Number: US-KVK-TECH, INC-20210200016

PATIENT
  Age: 72 Year
  Sex: Male

DRUGS (2)
  1. OXYCODONE HYDROCHLORIDE UNSPECIFIED [Suspect]
     Active Substance: OXYCODONE HYDROCHLORIDE
     Indication: CATHETER SITE PAIN
     Dosage: UNK
     Route: 065
  2. XTANDI [Suspect]
     Active Substance: ENZALUTAMIDE
     Indication: PRODUCT USED FOR UNKNOWN INDICATION
     Dosage: 160MG, ONCE DAILY
     Route: 048

REACTIONS (1)
  - Constipation [Unknown]

NARRATIVE: CASE EVENT DATE: 20200428
